FAERS Safety Report 14519752 (Version 1)
Quarter: 2018Q1

REPORT INFORMATION
  Report Type: Spontaneous
  Country: US (occurrence: US)
  Receive Date: 20180210
  Receipt Date: 20180210
  Transmission Date: 20180509
  Serious: Yes (Disabling)
  Sender: FDA-Public Use
  Company Number: None

PATIENT
  Age: 34 Year
  Sex: Female
  Weight: 54 kg

DRUGS (7)
  1. QUERCETIN [Concomitant]
     Active Substance: QUERCETIN
  2. LEVALBUTEROL TARTRATE HFA INHALATION AEROSOL 45MCG/ACTUATION= [Suspect]
     Active Substance: LEVALBUTEROL TARTRATE
     Indication: ASTHMA
     Dosage: ?          QUANTITY:1 PUFF(S);?
     Route: 055
     Dates: start: 20180209, end: 20180209
  3. FLOVENT [Concomitant]
     Active Substance: FLUTICASONE PROPIONATE
  4. HERBAL MIX [Concomitant]
  5. MULTIVITAMIN [Concomitant]
     Active Substance: VITAMINS
  6. FISH OIL [Concomitant]
     Active Substance: FISH OIL
  7. LYME [Concomitant]

REACTIONS (8)
  - Gastric dilatation [None]
  - Diarrhoea [None]
  - Muscle spasms [None]
  - Nasopharyngitis [None]
  - Burning sensation [None]
  - Flatulence [None]
  - Nausea [None]
  - Hypersensitivity [None]

NARRATIVE: CASE EVENT DATE: 20180209
